FAERS Safety Report 21962198 (Version 10)
Quarter: 2024Q4

REPORT INFORMATION
  Report Type: Spontaneous
  Country: US (occurrence: US)
  Receive Date: 20230207
  Receipt Date: 20241216
  Transmission Date: 20250115
  Serious: Yes (Hospitalization, Disabling, Other)
  Sender: PFIZER
  Company Number: US-PFIZER INC-PV202300023156

PATIENT
  Age: 67 Year
  Sex: Male
  Weight: 81.179 kg

DRUGS (7)
  1. BRAFTOVI [Suspect]
     Active Substance: ENCORAFENIB
     Indication: Malignant melanoma
     Dosage: 450 MG, 1X/DAY (75 MG 6 CAP Q (EVERY) DAY)/TAKE 6 CAPSULE(450 MG) BY MOUTH NIGHTLY
     Route: 048
  2. BRAFTOVI [Suspect]
     Active Substance: ENCORAFENIB
     Indication: Skin cancer
     Dosage: 450 MG, 1X/DAY (75 MG 6 CAP Q (EVERY) DAY)/TAKE 6 CAPSULE(450 MG) BY MOUTH NIGHTLY
     Route: 048
  3. MEKTOVI [Suspect]
     Active Substance: BINIMETINIB
     Indication: Malignant melanoma
     Dosage: 90 MG
     Route: 048
  4. MEKTOVI [Suspect]
     Active Substance: BINIMETINIB
     Indication: Skin cancer
     Dosage: 45 MG, 2X/DAY (3 EVENING, 3 MORNING/15 MG 3 TAB BID (TWICE A DAY))
     Route: 048
  5. LEVETIRACETAM [Concomitant]
     Active Substance: LEVETIRACETAM
     Dosage: 500 MG, 3X/DAY, (2 EVENING - 1 MORNING)
     Dates: start: 2019
  6. PREGABALIN [Concomitant]
     Active Substance: PREGABALIN
     Dosage: 100 MG, 2X/DAY
     Dates: start: 2019
  7. LEVOTHYROXINE SODIUM [Concomitant]
     Active Substance: LEVOTHYROXINE SODIUM
     Dosage: 0.075 MG
     Dates: start: 2022

REACTIONS (5)
  - Leg amputation [Recovered/Resolved]
  - Second primary malignancy [Recovered/Resolved]
  - Malignant fibrous histiocytoma [Recovered/Resolved]
  - Neoplasm progression [Recovered/Resolved]
  - Vitiligo [Unknown]

NARRATIVE: CASE EVENT DATE: 20220901
